FAERS Safety Report 25573937 (Version 2)
Quarter: 2025Q3

REPORT INFORMATION
  Report Type: Spontaneous
  Country: JP (occurrence: JP)
  Receive Date: 20250717
  Receipt Date: 20250812
  Transmission Date: 20251020
  Serious: Yes (Disabling, Other)
  Sender: NX DEVELOPMENT CORPORATION
  Company Number: JP-sbiph-S000194910

PATIENT
  Age: 74 Year
  Sex: Male
  Weight: 65.6 kg

DRUGS (6)
  1. AMINOLEVULINIC ACID HYDROCHLORIDE [Suspect]
     Active Substance: AMINOLEVULINIC ACID HYDROCHLORIDE
     Indication: Bladder transitional cell carcinoma
     Dosage: 1400 MG
     Route: 048
     Dates: start: 20240215, end: 20240215
  2. PIRARUBICIN [Concomitant]
     Active Substance: PIRARUBICIN
     Indication: Bladder transitional cell carcinoma
     Route: 043
     Dates: start: 20240215, end: 20240215
  3. BUPIVACAINE HYDROCHLORIDE [Concomitant]
     Active Substance: BUPIVACAINE HYDROCHLORIDE
     Indication: Anaesthesia procedure
     Route: 024
     Dates: start: 20240215, end: 20240215
  4. TOLVAPTAN [Concomitant]
     Active Substance: TOLVAPTAN
  5. AZOSEMIDE [Concomitant]
     Active Substance: AZOSEMIDE
  6. BISOPROLOL [Concomitant]
     Active Substance: BISOPROLOL

REACTIONS (4)
  - Blood pressure decreased [Recovered/Resolved]
  - Atrial fibrillation [Unknown]
  - Inappropriate schedule of product administration [Unknown]
  - Hepatic function abnormal [Unknown]

NARRATIVE: CASE EVENT DATE: 20240215
